FAERS Safety Report 25026642 (Version 2)
Quarter: 2025Q4

REPORT INFORMATION
  Report Type: Spontaneous
  Country: US (occurrence: US)
  Receive Date: 20250301
  Receipt Date: 20251222
  Transmission Date: 20260118
  Serious: Yes (Death, Hospitalization)
  Sender: MERCK SHARP & DOHME LLC
  Company Number: US-009507513-2256280

PATIENT
  Age: 73 Year
  Sex: Male

DRUGS (1)
  1. KEYTRUDA [Suspect]
     Active Substance: PEMBROLIZUMAB
     Indication: Oesophageal carcinoma
     Dosage: CONCENTRATION: INJECTION 100 MG

REACTIONS (3)
  - Malignant neoplasm progression [Fatal]
  - Hospice care [Unknown]
  - Gastrointestinal disorder [Fatal]

NARRATIVE: CASE EVENT DATE: 20250207
